FAERS Safety Report 21729592 (Version 2)
Quarter: 2022Q4

REPORT INFORMATION
  Report Type: Spontaneous
  Country: IT (occurrence: IT)
  Receive Date: 20221214
  Receipt Date: 20221230
  Transmission Date: 20230113
  Serious: Yes (Hospitalization)
  Sender: FDA-Public Use
  Company Number: None

PATIENT
  Age: 80 Year
  Sex: Female
  Weight: 86 kg

DRUGS (5)
  1. PAXLOVID [Suspect]
     Active Substance: NIRMATRELVIR\RITONAVIR
     Indication: COVID-19 treatment
     Dosage: [PF-07321332 300 MG]/[RITONAVIR 100 MG]; 2X/DAY EVERY 12 HOURS
     Route: 048
     Dates: start: 20221129, end: 20221130
  2. LEVOTHYROXINE [Concomitant]
     Active Substance: LEVOTHYROXINE
     Dosage: CONTINUATION OF HOME THERAPY
     Route: 048
     Dates: start: 19700101
  3. ENOXAPARIN SODIUM [Concomitant]
     Active Substance: ENOXAPARIN SODIUM
     Indication: Deep vein thrombosis
     Dosage: 1 VIAL UNDER SKIN AT 3PM
     Route: 058
     Dates: start: 20221129
  4. RAMIPRIL [Concomitant]
     Active Substance: RAMIPRIL
     Dosage: EXTEMPORANEOUS THERAPY ADMINISTERED AT 7 PM ON 29/NOV
     Route: 048
     Dates: start: 20221129, end: 20221129
  5. CARVEDILOL [Concomitant]
     Active Substance: CARVEDILOL
     Dosage: CONTINUATION OF HOME THERAPY
     Route: 048
     Dates: start: 19700101, end: 19700101

REACTIONS (4)
  - Atrial fibrillation [Recovering/Resolving]
  - Hypotension [Recovering/Resolving]
  - Loss of consciousness [Recovering/Resolving]
  - Malaise [Recovering/Resolving]

NARRATIVE: CASE EVENT DATE: 20221130
